FAERS Safety Report 18646047 (Version 1)
Quarter: 2020Q4

REPORT INFORMATION
  Report Type: Other
  Country: CA (occurrence: CA)
  Receive Date: 20201222
  Receipt Date: 20201222
  Transmission Date: 20210114
  Serious: Yes (Other)
  Sender: FDA-Public Use
  Company Number: CA-CELLTRION INC.-2020CA033981

PATIENT

DRUGS (6)
  1. RITUXIMAB (UNKNOWN) [Suspect]
     Active Substance: RITUXIMAB
     Indication: RHEUMATOID ARTHRITIS
     Dosage: 1000 MILLIGRAM
     Route: 042
  2. FOLIC ACID. [Concomitant]
     Active Substance: FOLIC ACID
  3. VISANNE [Concomitant]
     Active Substance: DIENOGEST
  4. PREDNISONE. [Concomitant]
     Active Substance: PREDNISONE
  5. METHOTREXATE. [Suspect]
     Active Substance: METHOTREXATE
     Indication: PRODUCT USED FOR UNKNOWN INDICATION
     Route: 065
  6. NAPROXEN. [Suspect]
     Active Substance: NAPROXEN
     Indication: PRODUCT USED FOR UNKNOWN INDICATION
     Route: 065

REACTIONS (8)
  - Depression [Unknown]
  - Malaise [Unknown]
  - Dizziness [Unknown]
  - Vomiting [Unknown]
  - Sluggishness [Unknown]
  - Headache [Unknown]
  - Sarcoidosis [Unknown]
  - Nausea [Unknown]
